FAERS Safety Report 5632370-0 (Version None)
Quarter: 2008Q1

REPORT INFORMATION
  Report Type: 
  Country: None (occurrence: None)
  Receive Date: 20080131
  Receipt Date: 20071009
  Transmission Date: 20080703
  Serious: No
  Sender: FDA-Public Use
  Company Number: 163-21880-07100517

PATIENT
  Age: 69 Year
  Sex: Male
  Weight: 63.5036 kg

DRUGS (6)
  1. REVLIMID [Suspect]
     Indication: MYELODYSPLASTIC SYNDROME
     Dosage: 5 MG, QD X3 WEEKS ON AND 1 WEEK OFF, ORAL
     Route: 048
     Dates: start: 20070913
  2. WARFARIN SODIUM [Concomitant]
  3. COREG [Concomitant]
  4. LASIX [Concomitant]
  5. ASPIRIN [Concomitant]
  6. SPIRIVA [Concomitant]

REACTIONS (4)
  - FACE OEDEMA [None]
  - FATIGUE [None]
  - PRURITUS [None]
  - RASH [None]
